FAERS Safety Report 6830993-4 (Version None)
Quarter: 2010Q3

REPORT INFORMATION
  Report Type: 
  Country: None (occurrence: None)
  Receive Date: 20100712
  Receipt Date: 20100710
  Transmission Date: 20110219
  Serious: Yes (Death, Other)
  Sender: FDA-Public Use
  Company Number: US-JNJFOC-20090900071

PATIENT
  Age: 51 Year
  Sex: Female

DRUGS (2)
  1. FENTANYL CITRATE [Suspect]
     Indication: COMPLETED SUICIDE
     Route: 048
  2. FENTANYL CITRATE [Suspect]
     Indication: DRUG ABUSE
     Route: 048

REACTIONS (12)
  - APNOEA [None]
  - BLOOD CREATININE INCREASED [None]
  - BLOOD LACTIC ACID INCREASED [None]
  - COMPLETED SUICIDE [None]
  - HYPOXIA [None]
  - HYPOXIC-ISCHAEMIC ENCEPHALOPATHY [None]
  - INTENTIONAL DRUG MISUSE [None]
  - LIVER FUNCTION TEST ABNORMAL [None]
  - LOSS OF CONSCIOUSNESS [None]
  - NARCOTIC INTOXICATION [None]
  - RESPIRATORY ARREST [None]
  - TROPONIN INCREASED [None]
